FAERS Safety Report 9001902 (Version 2)
Quarter: 2013Q1

REPORT INFORMATION
  Report Type: Report from Study
  Country: JP (occurrence: JP)
  Receive Date: 20130107
  Receipt Date: 20130314
  Transmission Date: 20140127
  Serious: Yes (Hospitalization)
  Sender: FDA-Public Use
  Company Number: JP-ROCHE-1175082

PATIENT
  Age: 66 None
  Sex: Female

DRUGS (22)
  1. TOCILIZUMAB [Suspect]
     Indication: RHEUMATOID ARTHRITIS
     Route: 041
     Dates: start: 20081008, end: 20110810
  2. TOCILIZUMAB [Suspect]
     Indication: RHEUMATOID ARTHRITIS
     Route: 041
     Dates: start: 20111106
  3. PREDONINE [Concomitant]
     Indication: RHEUMATOID ARTHRITIS
     Route: 048
     Dates: end: 20090303
  4. PREDNISOLONE [Concomitant]
     Indication: RHEUMATOID ARTHRITIS
     Route: 048
     Dates: start: 20090304
  5. PREDNISOLONE [Concomitant]
     Indication: RHEUMATOID ARTHRITIS
     Route: 048
  6. METHOTREXATE [Concomitant]
     Indication: RHEUMATOID ARTHRITIS
     Route: 048
     Dates: end: 20090203
  7. METHOTREXATE [Concomitant]
     Indication: RHEUMATOID ARTHRITIS
     Route: 048
     Dates: start: 20090204, end: 20090303
  8. METHOTREXATE [Concomitant]
     Indication: RHEUMATOID ARTHRITIS
     Route: 048
     Dates: start: 20090304
  9. METHOTREXATE [Concomitant]
     Indication: RHEUMATOID ARTHRITIS
     Route: 048
     Dates: end: 20110928
  10. METHOTREXATE [Concomitant]
     Indication: RHEUMATOID ARTHRITIS
     Route: 048
     Dates: start: 20111105
  11. METHOTREXATE [Concomitant]
     Dosage: 2MG, 3 TABLETS/DAY, 2 FOR SAT MORNING + 1 FOR SAT EVENING
     Route: 048
     Dates: start: 20110302
  12. LOXONIN [Concomitant]
     Indication: RHEUMATOID ARTHRITIS
     Route: 048
     Dates: start: 20081008, end: 20090106
  13. GASTER [Concomitant]
     Indication: PROPHYLAXIS
     Route: 048
     Dates: start: 20081112, end: 20090106
  14. FOLIAMIN [Concomitant]
     Indication: PROPHYLAXIS
     Route: 048
     Dates: start: 20081112
  15. CATLEP [Concomitant]
     Indication: RHEUMATOID ARTHRITIS
     Dosage: PROPERLY
     Route: 061
     Dates: start: 20081112
  16. SELTOUCH [Concomitant]
     Indication: RHEUMATOID ARTHRITIS
     Dosage: PROPERLY
     Route: 061
     Dates: start: 20081008, end: 20081111
  17. MOBIC [Concomitant]
     Indication: RHEUMATOID ARTHRITIS
     Route: 048
     Dates: start: 20090107
  18. SELBEX [Concomitant]
     Indication: PROPHYLAXIS
     Route: 048
     Dates: start: 20090304
  19. BAKTAR [Concomitant]
     Indication: PROPHYLAXIS
     Route: 048
     Dates: start: 20090401
  20. BAKTAR [Concomitant]
     Indication: PROPHYLAXIS
     Route: 048
  21. MYSLEE [Concomitant]
     Route: 048
  22. LOCOID [Concomitant]
     Dosage: PROPERLY
     Route: 003

REACTIONS (2)
  - Intestinal obstruction [Unknown]
  - Intestinal perforation [Recovered/Resolved]
